FAERS Safety Report 20157745 (Version 1)
Quarter: 2021Q4

REPORT INFORMATION
  Report Type: Spontaneous
  Country: US (occurrence: US)
  Receive Date: 20211207
  Receipt Date: 20211207
  Transmission Date: 20220303
  Serious: Yes (Other)
  Sender: FDA-Public Use
  Company Number: US-PFIZER INC-202101655776

PATIENT
  Age: 78 Year
  Sex: Male
  Weight: 111 kg

DRUGS (2)
  1. BUPIVACAINE HYDROCHLORIDE [Suspect]
     Active Substance: BUPIVACAINE HYDROCHLORIDE
     Indication: Surgery
     Dosage: UNKNOWN DOSE UP TO 28.5ML
     Dates: start: 20211118
  2. EPINEPHRINE [Suspect]
     Active Substance: EPINEPHRINE
     Indication: Surgery
     Dosage: UP TO 1.5MG
     Dates: start: 20211118

REACTIONS (2)
  - Heart rate increased [Recovering/Resolving]
  - Blood pressure increased [Recovering/Resolving]

NARRATIVE: CASE EVENT DATE: 20211118
